FAERS Safety Report 8213476-9 (Version None)
Quarter: 2012Q1

REPORT INFORMATION
  Report Type: 
  Country: None (occurrence: None)
  Receive Date: 20120315
  Receipt Date: 20120312
  Transmission Date: 20120608
  Serious: Yes (Death)
  Sender: FDA-Public Use
  Company Number: FR-ABBOTT-11P-056-0879780-00

PATIENT
  Age: 43 Year
  Sex: Female

DRUGS (7)
  1. DEPAKOTE [Suspect]
     Indication: BIPOLAR DISORDER
     Dosage: 500 MG DAILY
     Route: 048
     Dates: start: 20111002, end: 20111004
  2. TERCIAN [Suspect]
     Indication: BIPOLAR DISORDER
     Dosage: 25 MG DAILY
     Route: 048
     Dates: start: 20111002, end: 20111004
  3. TERCIAN [Suspect]
     Dates: end: 20110901
  4. TRANXENE [Suspect]
     Indication: PRODUCT USED FOR UNKNOWN INDICATION
     Dosage: 10 MG DAILY
     Route: 048
     Dates: start: 20111002, end: 20111004
  5. ABILIFY [Suspect]
     Indication: BIPOLAR DISORDER
     Dosage: 10 MG DAILY
     Route: 048
     Dates: start: 20111002, end: 20111004
  6. ABILIFY [Suspect]
     Dates: end: 20110901
  7. TETANUS VACCINE [Suspect]
     Indication: PRODUCT USED FOR UNKNOWN INDICATION
     Dates: start: 20111003, end: 20111003

REACTIONS (4)
  - WOUND [None]
  - CARDIO-RESPIRATORY ARREST [None]
  - AGITATION [None]
  - CYANOSIS [None]
